FAERS Safety Report 7021162-6 (Version None)
Quarter: 2010Q3

REPORT INFORMATION
  Report Type: 
  Country: None (occurrence: None)
  Receive Date: 20100929
  Receipt Date: 20100917
  Transmission Date: 20110219
  Serious: Yes (Death, Hospitalization)
  Sender: FDA-Public Use
  Company Number: DE-WATSON-2010-12814

PATIENT
  Age: 76 Year
  Sex: Female
  Weight: 78 kg

DRUGS (6)
  1. CIPROFLOXACIN HCL [Suspect]
     Indication: DIVERTICULITIS
     Dosage: 500 MG, BID
     Route: 048
     Dates: start: 20100416, end: 20100419
  2. DICLAC ID                            /00372302/ [Suspect]
     Indication: PRODUCT USED FOR UNKNOWN INDICATION
     Dosage: UNK MG, PRN
     Route: 048
     Dates: start: 20100222, end: 20100419
  3. ATACAND HCT [Suspect]
     Indication: HYPERTENSION
     Dosage: 1 DF, DAILY
     Route: 048
     Dates: start: 20000101, end: 20100419
  4. ATACAND [Suspect]
     Indication: HYPERTENSION
     Dosage: 16 MG, DAILY
     Route: 048
     Dates: start: 20091101, end: 20100419
  5. SALOFALK                           /00747601/ [Suspect]
     Indication: DIVERTICULITIS
     Dosage: 1 DF, DAILY
     Route: 054
     Dates: start: 20100326, end: 20100415
  6. IBUPROFEN [Suspect]
     Indication: PRODUCT USED FOR UNKNOWN INDICATION
     Dosage: NEARLY 300 MG EVERY 4TH DAY
     Route: 048
     Dates: start: 20070101, end: 20100405

REACTIONS (2)
  - COLITIS [None]
  - RENAL FAILURE ACUTE [None]
